FAERS Safety Report 12847730 (Version 1)
Quarter: 2016Q4

REPORT INFORMATION
  Report Type: Spontaneous
  Country: US (occurrence: US)
  Receive Date: 20161014
  Receipt Date: 20161014
  Transmission Date: 20170207
  Serious: No
  Sender: FDA-Public Use
  Company Number: US-JNJFOC-20160915480

PATIENT
  Age: 80 Year
  Sex: Female
  Weight: 80.74 kg

DRUGS (2)
  1. TYLENOL 8 HR ARTHRITIS PAIN [Suspect]
     Active Substance: ACETAMINOPHEN
     Route: 048
  2. TYLENOL 8 HR ARTHRITIS PAIN [Suspect]
     Active Substance: ACETAMINOPHEN
     Indication: ARTHRALGIA
     Dosage: 2 CAPLETS IN THE MORNING.
     Route: 048

REACTIONS (3)
  - Product closure removal difficult [Unknown]
  - Intentional underdose [Unknown]
  - Drug effect incomplete [Unknown]
